FAERS Safety Report 13823526 (Version 1)
Quarter: 2017Q3

REPORT INFORMATION
  Report Type: Spontaneous
  Country: ES (occurrence: ES)
  Receive Date: 20170802
  Receipt Date: 20170802
  Transmission Date: 20171127
  Serious: Yes (Hospitalization, Other)
  Sender: FDA-Public Use
  Company Number: ES-BEH-2017082396

PATIENT
  Age: 64 Year
  Sex: Male

DRUGS (4)
  1. PRIVIGEN [Suspect]
     Active Substance: HUMAN IMMUNOGLOBULIN G
     Indication: POLYNEUROPATHY
     Dosage: 40 G, QD
     Route: 042
     Dates: start: 20161121, end: 20161125
  2. PARACETAMOL [Concomitant]
     Active Substance: ACETAMINOPHEN
     Dosage: 1 G, QD
     Route: 042
     Dates: start: 20161121, end: 20161125
  3. POLARAMINE [Concomitant]
     Active Substance: DEXCHLORPHENIRAMINE MALEATE
     Dosage: 15 MG, QD
     Route: 042
     Dates: start: 20161121, end: 20161126
  4. HIBOR [Concomitant]
     Active Substance: BEMIPARIN SODIUM
     Dosage: 10000 IU, UNK
     Route: 058
     Dates: start: 20161121, end: 20161124

REACTIONS (9)
  - Epistaxis [Unknown]
  - Epistaxis [Recovered/Resolved with Sequelae]
  - Headache [Unknown]
  - Epistaxis [Unknown]
  - Blood pressure increased [Unknown]
  - Headache [Recovered/Resolved with Sequelae]
  - Blood pressure increased [Recovered/Resolved with Sequelae]
  - Headache [Recovered/Resolved with Sequelae]
  - Blood pressure increased [Unknown]

NARRATIVE: CASE EVENT DATE: 20161123
